FAERS Safety Report 17726666 (Version 7)
Quarter: 2020Q2

REPORT INFORMATION
  Report Type: Spontaneous
  Country: IT (occurrence: IT)
  Receive Date: 20200430
  Receipt Date: 20200625
  Transmission Date: 20200714
  Serious: Yes (Death)
  Sender: FDA-Public Use
  Company Number: IT-BEH-2020116664

PATIENT
  Age: 8 Year
  Sex: Female
  Weight: 15 kg

DRUGS (6)
  1. PRIVIGEN [Suspect]
     Active Substance: HUMAN IMMUNOGLOBULIN G
     Indication: GUILLAIN-BARRE SYNDROME
     Dosage: 2000 MILLIGRAM/KILOGRAM, TOT
     Route: 042
     Dates: start: 20200416, end: 20200417
  2. PRIVIGEN [Suspect]
     Active Substance: HUMAN IMMUNOGLOBULIN G
     Dosage: UNK
     Route: 042
     Dates: start: 20200416, end: 20200417
  3. IMIPENEM AND CILASTATIN [Suspect]
     Active Substance: CILASTATIN SODIUM\IMIPENEM
     Indication: CYSTIC FIBROSIS
     Dosage: UNK
     Route: 042
     Dates: start: 20200416, end: 20200417
  4. PRIVIGEN [Suspect]
     Active Substance: HUMAN IMMUNOGLOBULIN G
     Dosage: UNK
     Route: 042
     Dates: start: 20200416, end: 20200417
  5. OXACILLIN [Suspect]
     Active Substance: OXACILLIN SODIUM
     Indication: CYSTIC FIBROSIS
     Dosage: UNK
     Route: 042
     Dates: start: 20200416, end: 20200417
  6. ACICLOVIR [Suspect]
     Active Substance: ACYCLOVIR
     Indication: CYSTIC FIBROSIS
     Dosage: UNK
     Route: 042
     Dates: start: 20200416, end: 20200417

REACTIONS (2)
  - Brain herniation [Fatal]
  - Brain oedema [Fatal]

NARRATIVE: CASE EVENT DATE: 20200417
